FAERS Safety Report 21000861 (Version 2)
Quarter: 2023Q2

REPORT INFORMATION
  Report Type: Spontaneous
  Country: GB (occurrence: GB)
  Receive Date: 20220624
  Receipt Date: 20230605
  Transmission Date: 20230721
  Serious: Yes (Other)
  Sender: FDA-Public Use
  Company Number: None

PATIENT
  Age: 22 Year
  Sex: Female
  Weight: 75 kg

DRUGS (11)
  1. TRAMADOL HYDROCHLORIDE [Suspect]
     Active Substance: TRAMADOL HYDROCHLORIDE
     Indication: Ill-defined disorder
     Dosage: 2 DOSAGE FORM, EVERY 4 HRS
     Route: 065
     Dates: start: 20220519
  2. AMITRIPTYLINE HYDROCHLORIDE [Concomitant]
     Active Substance: AMITRIPTYLINE HYDROCHLORIDE
     Indication: Ill-defined disorder
     Dosage: 2 DOSAGE FORM, 1/DAY
     Route: 065
     Dates: start: 20220330, end: 20220427
  3. DESOGESTREL [Concomitant]
     Active Substance: DESOGESTREL
     Indication: Ill-defined disorder
     Dosage: 1 DOSAGE FORM, 1/DAY
     Route: 065
     Dates: start: 20210719
  4. DOXYCYCLINE [Concomitant]
     Active Substance: DOXYCYCLINE
     Indication: Ill-defined disorder
     Dosage: UNK
     Route: 065
     Dates: start: 20220606, end: 20220611
  5. FEXOFENADINE [Concomitant]
     Active Substance: FEXOFENADINE HYDROCHLORIDE
     Indication: Seasonal allergy
     Dosage: 1 DOSAGE FORM, 1/DAY
     Route: 065
     Dates: start: 20210723
  6. FUSIDIC ACID [Concomitant]
     Active Substance: FUSIDIC ACID
     Indication: Ill-defined disorder
     Dosage: 1 DOSAGE FORM, 3/DAY
     Route: 065
     Dates: start: 20220530, end: 20220606
  7. NAPROXEN [Concomitant]
     Active Substance: NAPROXEN
     Indication: Ill-defined disorder
     Dosage: 1 DOSAGE FORM, 2/DAY
     Route: 065
     Dates: start: 20220316, end: 20220413
  8. NITROFURANTOIN [Concomitant]
     Active Substance: NITROFURANTOIN
     Indication: Ill-defined disorder
     Dosage: 1 DOSAGE FORM, 2/DAY
     Route: 065
     Dates: start: 20220505, end: 20220508
  9. OMEPRAZOLE [Concomitant]
     Active Substance: OMEPRAZOLE
     Indication: Ill-defined disorder
     Dosage: 1 DOSAGE FORM, 1/DAY
     Route: 065
     Dates: start: 20220316, end: 20220413
  10. SERTRALINE [Concomitant]
     Active Substance: SERTRALINE HYDROCHLORIDE
     Indication: Ill-defined disorder
     Dosage: 1 DOSAGE FORM, 1/DAY
     Route: 065
     Dates: start: 20211004
  11. TOLTERODINE TARTRATE [Concomitant]
     Active Substance: TOLTERODINE TARTRATE
     Indication: Ill-defined disorder
     Dosage: 1 DOSAGE FORM, 1/DAY
     Route: 065
     Dates: start: 20220302

REACTIONS (4)
  - Dizziness [Recovered/Resolved]
  - Nausea [Recovered/Resolved]
  - Myalgia [Recovered/Resolved]
  - Dizziness [Recovered/Resolved]

NARRATIVE: CASE EVENT DATE: 20220613
